FAERS Safety Report 7090236-6 (Version None)
Quarter: 2010Q4

REPORT INFORMATION
  Report Type: 
  Country: None (occurrence: None)
  Receive Date: 20101109
  Receipt Date: 20101103
  Transmission Date: 20110411
  Serious: Yes (Death, Other)
  Sender: FDA-Public Use
  Company Number: SI-CELGENEUS-261-21880-10091401

PATIENT
  Sex: Male
  Weight: 60 kg

DRUGS (10)
  1. REVLIMID [Suspect]
     Indication: MULTIPLE MYELOMA
     Route: 048
     Dates: start: 20100611, end: 20100616
  2. REVLIMID [Suspect]
     Route: 048
     Dates: start: 20100616, end: 20100701
  3. REVLIMID [Suspect]
     Route: 048
     Dates: start: 20100701, end: 20100728
  4. DEXAMETHASONE [Suspect]
     Indication: MULTIPLE MYELOMA
     Route: 065
     Dates: start: 20100611
  5. NOLPAZA [Concomitant]
     Route: 065
  6. PRIMOTREN [Concomitant]
     Route: 065
  7. ALLOPURINOL [Concomitant]
     Route: 065
  8. VALTREX [Concomitant]
     Route: 065
  9. ANALGETINA [Concomitant]
     Route: 065
  10. FRAGMIN [Concomitant]
     Route: 058

REACTIONS (3)
  - PLASMACYTOMA [None]
  - RENAL FAILURE [None]
  - THROMBOCYTOPENIA [None]
